FAERS Safety Report 18475569 (Version 1)
Quarter: 2020Q4

REPORT INFORMATION
  Report Type: Spontaneous
  Country: US (occurrence: US)
  Receive Date: 20201106
  Receipt Date: 20201106
  Transmission Date: 20210114
  Serious: No
  Sender: FDA-Public Use
  Company Number: US-BAYER-2020-240855

PATIENT

DRUGS (2)
  1. ALEVE [Suspect]
     Active Substance: NAPROXEN SODIUM
     Route: 048
  2. ASPIRIN (PAIN AND FEVER) [Suspect]
     Active Substance: ASPIRIN

REACTIONS (1)
  - Blood pressure increased [Unknown]
